FAERS Safety Report 16777733 (Version 2)
Quarter: 2019Q3

REPORT INFORMATION
  Report Type: Spontaneous
  Country: US (occurrence: US)
  Receive Date: 20190905
  Receipt Date: 20190918
  Transmission Date: 20191005
  Serious: Yes (Life-Threatening, Hospitalization, Other)
  Sender: FDA-Public Use
  Company Number: US-PFIZER INC-2019378452

PATIENT
  Age: 81 Year
  Sex: Female

DRUGS (9)
  1. FENTANYL. [Suspect]
     Active Substance: FENTANYL
     Indication: SEDATION
  2. FENTANYL. [Suspect]
     Active Substance: FENTANYL
     Indication: INDUCTION OF ANAESTHESIA
     Dosage: 50 UG, UNK
     Route: 042
  3. PROPOFOL. [Suspect]
     Active Substance: PROPOFOL
     Indication: INDUCTION OF ANAESTHESIA
     Dosage: 100 MG, UNK
     Route: 042
  4. ATROPINE SULFATE. [Suspect]
     Active Substance: ATROPINE SULFATE
     Indication: BRADYCARDIA
     Dosage: UNK
     Route: 065
  5. ADRENALINE [Suspect]
     Active Substance: EPINEPHRINE
     Indication: HYPOTENSION
  6. ADRENALINE [Suspect]
     Active Substance: EPINEPHRINE
     Indication: BRADYCARDIA
     Dosage: UNK
     Route: 065
  7. GLYCOPYRROLATE [GLYCOPYRRONIUM BROMIDE] [Suspect]
     Active Substance: GLYCOPYRROLATE
     Indication: BRADYCARDIA
     Dosage: UNK
     Route: 065
  8. ATROPINE SULFATE. [Suspect]
     Active Substance: ATROPINE SULFATE
     Indication: HYPOTENSION
  9. PROPOFOL. [Suspect]
     Active Substance: PROPOFOL
     Indication: SEDATION

REACTIONS (5)
  - Bundle branch block left [Recovering/Resolving]
  - Atrioventricular block complete [Recovering/Resolving]
  - Bradycardia [Recovering/Resolving]
  - Stress cardiomyopathy [Recovering/Resolving]
  - Hypotension [Recovering/Resolving]
